FAERS Safety Report 4406269-1 (Version None)
Quarter: 2004Q3

REPORT INFORMATION
  Report Type: 
  Country: None (occurrence: None)
  Receive Date: 20040723
  Receipt Date: 20030530
  Transmission Date: 20050211
  Serious: No
  Sender: FDA-Public Use
  Company Number: US-GLAXOSMITHKLINE-A0410176A

PATIENT
  Age: 63 Year
  Sex: Female
  Weight: 39.1 kg

DRUGS (3)
  1. AVANDIA [Suspect]
     Route: 048
  2. PRAVACHOL [Concomitant]
     Route: 048
  3. AMARYL [Concomitant]
     Route: 048

REACTIONS (2)
  - FALL [None]
  - MUSCULAR WEAKNESS [None]
